FAERS Safety Report 4427708-6 (Version None)
Quarter: 2004Q3

REPORT INFORMATION
  Report Type: 
  Country: None (occurrence: None)
  Receive Date: 20040817
  Receipt Date: 20040727
  Transmission Date: 20050211
  Serious: Yes (Hospitalization)
  Sender: FDA-Public Use
  Company Number: IE-ROCHE-375767

PATIENT
  Age: 43 Year
  Sex: Female
  Weight: 129 kg

DRUGS (2)
  1. XENICAL [Suspect]
     Indication: OBESITY
     Route: 048
     Dates: start: 20031215, end: 20040713
  2. UNKNOWN MEDICATION NOS [Concomitant]

REACTIONS (1)
  - CALCIPHYLAXIS [None]
